FAERS Safety Report 8913812 (Version 3)
Quarter: 2013Q1

REPORT INFORMATION
  Report Type: Spontaneous
  Country: JP (occurrence: JP)
  Receive Date: 20121119
  Receipt Date: 20130315
  Transmission Date: 20140127
  Serious: Yes (Hospitalization)
  Sender: FDA-Public Use
  Company Number: JP-BRISTOL-MYERS SQUIBB COMPANY-17132655

PATIENT
  Age: 87 Year
  Sex: Female
  Weight: 50 kg

DRUGS (13)
  1. ORENCIA [Suspect]
     Indication: RHEUMATOID ARTHRITIS
     Dosage: INTERRUPTED ON 12OCT12 AND RESTARTED ON 25JAN2013
     Route: 041
     Dates: start: 20110422
  2. RHEUMATREX [Suspect]
     Indication: RHEUMATOID ARTHRITIS
     Route: 048
     Dates: start: 20100326, end: 20121026
  3. LOXOMARIN [Suspect]
     Indication: RHEUMATOID ARTHRITIS
     Dosage: TAB
     Route: 048
     Dates: start: 20120713, end: 20121026
  4. DIOVAN [Suspect]
     Indication: HYPERTENSION
     Route: 048
     Dates: start: 20020702, end: 20121026
  5. PREDONINE [Concomitant]
     Indication: RHEUMATOID ARTHRITIS
     Dates: start: 20110722
  6. ISONIAZIDE [Concomitant]
  7. CALCITRIOL [Concomitant]
     Indication: OSTEOPOROSIS
     Route: 048
     Dates: start: 20050726
  8. METHYCOBAL [Concomitant]
     Indication: NEUROPATHY PERIPHERAL
     Route: 048
     Dates: start: 20030509
  9. PREDNISOLONE [Concomitant]
     Indication: RHEUMATOID ARTHRITIS
     Route: 048
     Dates: start: 20110708
  10. NORVASC [Concomitant]
     Indication: HYPERTENSION
     Route: 048
     Dates: start: 20120604
  11. RHYTHMY [Concomitant]
     Indication: INSOMNIA
     Route: 048
     Dates: start: 20020730
  12. GASMOTIN [Concomitant]
     Indication: GASTRITIS
     Route: 048
     Dates: start: 20120416
  13. MAGMITT [Concomitant]
     Indication: CONSTIPATION
     Route: 048
     Dates: start: 20080103

REACTIONS (1)
  - Interstitial lung disease [Recovered/Resolved]
